FAERS Safety Report 13211255 (Version 3)
Quarter: 2017Q2

REPORT INFORMATION
  Report Type: Spontaneous
  Country: US (occurrence: US)
  Receive Date: 20170210
  Receipt Date: 20170411
  Transmission Date: 20170830
  Serious: No
  Sender: FDA-Public Use
  Company Number: US-PFIZER INC-2017052349

PATIENT
  Age: 80 Year
  Sex: Female

DRUGS (3)
  1. MELATONIN [Concomitant]
     Active Substance: MELATONIN
     Dosage: UNK, CYCLIC, (OFF AND ON)
  2. SYNTHROID [Concomitant]
     Active Substance: LEVOTHYROXINE SODIUM
     Dosage: 2 DF, DAILY
  3. CHANTIX [Suspect]
     Active Substance: VARENICLINE TARTRATE
     Indication: SMOKING CESSATION THERAPY
     Dosage: 5 MG, 2X/DAY
     Dates: start: 20160630

REACTIONS (8)
  - Dysphagia [Unknown]
  - Lip dry [Not Recovered/Not Resolved]
  - Intentional product misuse [Unknown]
  - Swollen tongue [Unknown]
  - Chapped lips [Not Recovered/Not Resolved]
  - Nausea [Unknown]
  - Stomatitis [Recovering/Resolving]
  - Wrong technique in product usage process [Unknown]

NARRATIVE: CASE EVENT DATE: 201701
